FAERS Safety Report 22699524 (Version 21)
Quarter: 2025Q3

REPORT INFORMATION
  Report Type: Report from Study
  Country: US (occurrence: US)
  Receive Date: 20230713
  Receipt Date: 20250923
  Transmission Date: 20251020
  Serious: Yes (Hospitalization)
  Sender: INSMED
  Company Number: US-INSMED, INC.-2023-01997-US

PATIENT
  Sex: Male

DRUGS (11)
  1. ARIKAYCE [Suspect]
     Active Substance: AMIKACIN
     Indication: Mycobacterium avium complex infection
     Dosage: 590 MILLIGRAM, QD
     Route: 055
     Dates: start: 20230524, end: 20230524
  2. ARIKAYCE [Suspect]
     Active Substance: AMIKACIN
     Dosage: 590 MILLIGRAM, QD
     Route: 055
     Dates: start: 20230605
  3. ARIKAYCE [Suspect]
     Active Substance: AMIKACIN
     Route: 055
     Dates: start: 2023, end: 202405
  4. ARIKAYCE [Suspect]
     Active Substance: AMIKACIN
     Route: 055
     Dates: start: 2024, end: 2024
  5. ARIKAYCE [Suspect]
     Active Substance: AMIKACIN
     Route: 055
     Dates: start: 20241112, end: 20250204
  6. ALBUTEROL [Suspect]
     Active Substance: ALBUTEROL
     Indication: Product used for unknown indication
     Route: 055
     Dates: end: 202305
  7. XOPENEX [Concomitant]
     Active Substance: LEVALBUTEROL HYDROCHLORIDE
     Indication: Product used for unknown indication
     Route: 065
     Dates: start: 202305
  8. AZITHROMYCIN [Concomitant]
     Active Substance: AZITHROMYCIN
     Indication: Product used for unknown indication
     Route: 065
  9. RIFAMPIN [Concomitant]
     Active Substance: RIFAMPIN
     Indication: Product used for unknown indication
     Route: 065
  10. ETHAMBUTOL [Concomitant]
     Active Substance: ETHAMBUTOL HYDROCHLORIDE
     Indication: Product used for unknown indication
     Route: 065
  11. AMIKACIN [Concomitant]
     Active Substance: AMIKACIN
     Indication: Product used for unknown indication
     Route: 042
     Dates: start: 2024, end: 20241111

REACTIONS (29)
  - Hospitalisation [Unknown]
  - Heart rate increased [Recovering/Resolving]
  - Pulmonary cavitation [Unknown]
  - Adverse drug reaction [Recovering/Resolving]
  - Dyspnoea [Recovering/Resolving]
  - Pulmonary calcification [Unknown]
  - Bronchial disorder [Unknown]
  - Blood pressure increased [Recovering/Resolving]
  - Oxygen saturation decreased [Recovered/Resolved]
  - Sputum decreased [Recovered/Resolved]
  - Sputum abnormal [Not Recovered/Not Resolved]
  - Dental implantation [Unknown]
  - Computerised tomogram abnormal [Not Recovered/Not Resolved]
  - COVID-19 [Recovered/Resolved]
  - Central venous catheterisation [Unknown]
  - Secretion discharge [Unknown]
  - Insomnia [Recovering/Resolving]
  - Anxiety [Recovering/Resolving]
  - Sputum increased [Not Recovered/Not Resolved]
  - Dyspnoea exertional [Unknown]
  - Chest discomfort [Unknown]
  - Unevaluable event [Not Recovered/Not Resolved]
  - Productive cough [Not Recovered/Not Resolved]
  - Fatigue [Unknown]
  - Tinnitus [Not Recovered/Not Resolved]
  - Cough [Unknown]
  - Throat irritation [Unknown]
  - Drug ineffective [Unknown]
  - Therapy interrupted [Unknown]

NARRATIVE: CASE EVENT DATE: 20230101
